FAERS Safety Report 23771623 (Version 1)
Quarter: 2024Q2

REPORT INFORMATION
  Report Type: Spontaneous
  Country: AU (occurrence: AU)
  Receive Date: 20240423
  Receipt Date: 20240423
  Transmission Date: 20240716
  Serious: Yes (Other)
  Sender: FDA-Public Use
  Company Number: AU-SUN PHARMACEUTICAL INDUSTRIES LTD-2024RR-443463

PATIENT
  Age: 72 Year
  Sex: Male

DRUGS (8)
  1. CEFTRIAXONE [Suspect]
     Active Substance: CEFTRIAXONE\CEFTRIAXONE SODIUM
     Indication: Mastoiditis
     Dosage: 2 GRAM, BID
     Route: 040
  2. MEROPENEM [Suspect]
     Active Substance: MEROPENEM
     Indication: Antibiotic therapy
     Dosage: 2 GRAM, TID
     Route: 040
  3. CIPROFLOXACIN [Suspect]
     Active Substance: CIPROFLOXACIN
     Indication: Antibiotic therapy
     Dosage: 400 MILLIGRAM - EVERY 8 HOURS
     Route: 040
  4. CIPROFLOXACIN [Suspect]
     Active Substance: CIPROFLOXACIN
     Dosage: 600 MILLIGRAM - EVERY 8 HOURS
     Route: 040
  5. VANCOMYCIN [Suspect]
     Active Substance: VANCOMYCIN
     Indication: Antibiotic therapy
     Dosage: 1.25 GRAM, BID
     Route: 040
  6. VANCOMYCIN [Suspect]
     Active Substance: VANCOMYCIN
     Dosage: 10 MILLIGRAM - DELIVERED INTO THE CENTRA NERVOUS SYSTEM OVER 24 H
     Route: 040
  7. PIPERACILLIN SODIUM\TAZOBACTAM SODIUM [Suspect]
     Active Substance: PIPERACILLIN SODIUM\TAZOBACTAM SODIUM
     Indication: Antibiotic therapy
     Dosage: 27 GRAM - OVER 24H - CONTINUOUS INFUSION
     Route: 040
  8. SULFAMETHOXAZOLE\TRIMETHOPRIM [Suspect]
     Active Substance: SULFAMETHOXAZOLE\TRIMETHOPRIM
     Indication: Antibiotic therapy
     Dosage: 320 MILLIGRAM, TID
     Route: 040

REACTIONS (3)
  - Drug ineffective [Unknown]
  - Condition aggravated [Unknown]
  - Hepatic function abnormal [Unknown]
